FAERS Safety Report 14994392 (Version 1)
Quarter: 2018Q2

REPORT INFORMATION
  Report Type: Spontaneous
  Country: US (occurrence: US)
  Receive Date: 20180611
  Receipt Date: 20180611
  Transmission Date: 20180711
  Serious: No
  Sender: FDA-Public Use
  Company Number: US-BAYER-2018-108868

PATIENT
  Age: 49 Year
  Sex: Female
  Weight: 100 kg

DRUGS (1)
  1. ALEVE [Suspect]
     Active Substance: NAPROXEN SODIUM
     Indication: PAIN
     Dosage: 3 DF, BID
     Route: 048
     Dates: start: 2018

REACTIONS (4)
  - Dyspepsia [Recovered/Resolved]
  - Incorrect dose administered [Unknown]
  - Product quality issue [None]
  - Product use issue [Unknown]

NARRATIVE: CASE EVENT DATE: 2018
